FAERS Safety Report 14379217 (Version 3)
Quarter: 2018Q2

REPORT INFORMATION
  Report Type: Spontaneous
  Country: SE (occurrence: SE)
  Receive Date: 20180112
  Receipt Date: 20180409
  Transmission Date: 20180711
  Serious: Yes (Hospitalization)
  Sender: FDA-Public Use
  Company Number: SE-009507513-1801SWE003736

PATIENT
  Age: 70 Year
  Sex: Female

DRUGS (10)
  1. OXYNORM [Concomitant]
     Active Substance: OXYCODONE HYDROCHLORIDE
     Dosage: AS NECESSARY
  2. BISOPROLOL SANDOZ [Concomitant]
     Active Substance: BISOPROLOL
  3. KEYTRUDA [Suspect]
     Active Substance: PEMBROLIZUMAB
     Indication: METASTATIC MALIGNANT MELANOMA
     Dosage: SECOND DOSE
     Dates: start: 20170914
  4. SIMVASTATIN KRKA [Concomitant]
     Active Substance: SIMVASTATIN
  5. LAKTULOS MEDA [Concomitant]
     Dosage: AS NECESSARY, STRENGTH REPORTED AS:670MG/ML
     Route: 048
  6. KEYTRUDA [Suspect]
     Active Substance: PEMBROLIZUMAB
     Dosage: FIRST DOSE
     Dates: start: 20170804
  7. JANUVIA [Concomitant]
     Active Substance: SITAGLIPTIN PHOSPHATE
     Route: 048
  8. BEHEPAN [Concomitant]
     Active Substance: HYDROXOCOBALAMIN
  9. FRAGMIN [Concomitant]
     Active Substance: DALTEPARIN SODIUM
     Dosage: STRENGTH REPORTED AS: 5000 IE
  10. ALVEDON [Concomitant]
     Active Substance: ACETAMINOPHEN
     Dosage: AS NECESSARY

REACTIONS (1)
  - Granulomatosis with polyangiitis [Not Recovered/Not Resolved]

NARRATIVE: CASE EVENT DATE: 20170914
